FAERS Safety Report 11639952 (Version 1)
Quarter: 2015Q4

REPORT INFORMATION
  Report Type: Spontaneous
  Country: PL (occurrence: PL)
  Receive Date: 20151019
  Receipt Date: 20151019
  Transmission Date: 20160304
  Serious: Yes (Life-Threatening)
  Sender: FDA-Public Use
  Company Number: PL-ELI_LILLY_AND_COMPANY-PL201510003756

PATIENT
  Age: 65 Year
  Sex: Female

DRUGS (1)
  1. HUMALOG [Suspect]
     Active Substance: INSULIN LISPRO
     Indication: PRODUCT USED FOR UNKNOWN INDICATION
     Dosage: UNK, UNKNOWN
     Route: 065

REACTIONS (2)
  - Drug ineffective [Unknown]
  - Hyperglycaemia [Unknown]
